FAERS Safety Report 7221513-3 (Version None)
Quarter: 2011Q1

REPORT INFORMATION
  Report Type: 
  Country: None (occurrence: None)
  Receive Date: 20110112
  Receipt Date: 20110104
  Transmission Date: 20110831
  Serious: Yes (Hospitalization)
  Sender: FDA-Public Use
  Company Number: PHHO2010US15645

PATIENT
  Sex: Male
  Weight: 63.4 kg

DRUGS (16)
  1. METOPROLOL [Concomitant]
  2. LISINOPRIL [Concomitant]
  3. FUROSEMIDE [Concomitant]
  4. PRAVASTATIN [Concomitant]
  5. CETRIZINE [Concomitant]
  6. AFINITOR [Suspect]
     Indication: THYROID CANCER
     Dosage: 10 MG, QD
     Route: 048
     Dates: start: 20100416, end: 20101006
  7. NAPROXEN [Concomitant]
  8. LASIX [Concomitant]
  9. ACETAMINOPHEN [Concomitant]
  10. ALBUTEROL [Concomitant]
  11. SPIRIVA [Concomitant]
  12. AFINITOR [Suspect]
     Dosage: 10 MG, QD
     Route: 048
     Dates: start: 20101022, end: 20101202
  13. LEVOXYL [Concomitant]
  14. CALCIUM [Concomitant]
  15. ANTIACID [Concomitant]
  16. ASPIRIN [Concomitant]

REACTIONS (4)
  - ASPIRATION PLEURAL CAVITY [None]
  - PLEURAL EFFUSION [None]
  - DYSPNOEA [None]
  - CARDIAC FAILURE CONGESTIVE [None]
